FAERS Safety Report 9334121 (Version 1)
Quarter: 2013Q2

REPORT INFORMATION
  Report Type: Spontaneous
  Country: US (occurrence: US)
  Receive Date: 20130606
  Receipt Date: 20130606
  Transmission Date: 20140414
  Serious: No
  Sender: FDA-Public Use
  Company Number: US-AMGEN-USASP2013013055

PATIENT
  Age: 73 Year
  Sex: Female

DRUGS (7)
  1. PROLIA [Suspect]
     Indication: OSTEOPOROSIS POSTMENOPAUSAL
     Dosage: UNK
     Dates: start: 20120803
  2. VITAMIN D                          /00107901/ [Concomitant]
     Dosage: UNK
  3. NEXIUM                             /01479302/ [Concomitant]
     Dosage: UNK
  4. MIRTAZAPINE [Concomitant]
     Dosage: UNK
  5. ATORVASTATIN [Concomitant]
     Dosage: UNK
  6. METOPROLOL [Concomitant]
     Dosage: UNK
  7. LUMIGAN [Concomitant]
     Dosage: UNK

REACTIONS (5)
  - Blood pressure increased [Recovered/Resolved]
  - Influenza [Recovered/Resolved]
  - Vitamin D abnormal [Recovered/Resolved]
  - Cystitis [Recovered/Resolved]
  - Rash [Recovered/Resolved]
